FAERS Safety Report 18178276 (Version 1)
Quarter: 2020Q3

REPORT INFORMATION
  Report Type: Spontaneous
  Country: DE (occurrence: DE)
  Receive Date: 20200820
  Receipt Date: 20200820
  Transmission Date: 20201103
  Serious: Yes (Life-Threatening, Hospitalization)
  Sender: FDA-Public Use
  Company Number: DE-MYLANLABS-2020M1071774

PATIENT
  Age: 87 Year
  Sex: Female

DRUGS (9)
  1. KALIUM VERLA [Concomitant]
     Active Substance: POTASSIUM CITRATE
     Dosage: 1 DOSAGE FORM, QD (1?0?0?0)
  2. TORASEMID [Concomitant]
     Active Substance: TORSEMIDE
     Dosage: 5 MILLIGRAM, QD (5 MG, 1?0?0?0)
  3. FERRO?SANOL DUODENAL [Concomitant]
     Active Substance: FERROUS GLYCINE SULFATE
     Dosage: 1 DOSAGE FORM, QD (1?0?0?0)
  4. PANTOPRAZOL                        /01263201/ [Concomitant]
     Active Substance: PANTOPRAZOLE
     Dosage: 40 MILLIGRAM, BID (40 MG, 1?0?1?0)
  5. FLORADIX MIT EISEN [Concomitant]
     Dosage: 1.5 MILLIGRAM, Q8H (1.5 MG, 1?1?1?0)
  6. MAGNESIUMSULFAT [Concomitant]
     Dosage: 1 DOSAGE FORM, QD (0?0?0?1)
  7. BISOPROLOL [Concomitant]
     Active Substance: BISOPROLOL
     Dosage: 5 MILLIGRAM, BID (5 MG, 1?0?1?0)
  8. ACETYLSALICYLIC ACID [Suspect]
     Active Substance: ASPIRIN
     Indication: PRODUCT USED FOR UNKNOWN INDICATION
     Dosage: 100 MILLIGRAM, QD (100 MG, 1?0?0?0)
  9. CLOPIDOGREL [Suspect]
     Active Substance: CLOPIDOGREL BISULFATE
     Indication: PRODUCT USED FOR UNKNOWN INDICATION
     Dosage: 75 MILLIGRAM, QD (75 MG, 1?0?0?0)

REACTIONS (9)
  - Fall [Unknown]
  - Wound [Unknown]
  - Haematochezia [Unknown]
  - Haematemesis [Unknown]
  - Face injury [Unknown]
  - Pallor [Unknown]
  - Dizziness [Unknown]
  - Anaemia [Unknown]
  - General physical health deterioration [Unknown]
